FAERS Safety Report 7395272-8 (Version None)
Quarter: 2011Q2

REPORT INFORMATION
  Report Type: 
  Country: None (occurrence: None)
  Receive Date: 20110405
  Receipt Date: 20110325
  Transmission Date: 20111010
  Serious: Yes (Hospitalization, Disabling, Other)
  Sender: FDA-Public Use
  Company Number: US-PFIZER INC-HQWYE206609FEB05

PATIENT
  Sex: Female
  Weight: 77 kg

DRUGS (8)
  1. ESTRADIOL [Suspect]
     Indication: HORMONE REPLACEMENT THERAPY
     Dosage: 0.5 AND 1 MG
     Route: 048
     Dates: start: 19870101, end: 19990101
  2. VALSARTAN [Concomitant]
     Indication: BLOOD PRESSURE
     Dosage: UNK
     Dates: start: 19780101
  3. PROMETRIUM [Suspect]
     Indication: HORMONE REPLACEMENT THERAPY
     Dosage: 100 MG, UNK
     Dates: start: 19990729
  4. PROVERA [Suspect]
     Indication: HORMONE REPLACEMENT THERAPY
     Dosage: 10 MG AND 2.5 MG
     Route: 048
     Dates: start: 19970101, end: 19980101
  5. CYCRIN [Suspect]
     Indication: HORMONE REPLACEMENT THERAPY
     Dosage: 2.5 MG AND 10 MG
     Dates: start: 19870101, end: 19980101
  6. PREMARIN [Suspect]
     Indication: HORMONE REPLACEMENT THERAPY
     Dosage: 0.625 MG
     Route: 048
     Dates: start: 19980723, end: 19980901
  7. PREMPRO [Suspect]
     Indication: HORMONE REPLACEMENT THERAPY
     Dosage: 0.625 MG/ 2.5 MG
     Route: 048
     Dates: start: 19970101, end: 19970901
  8. PREMPRO [Suspect]
     Dosage: UNK
     Route: 048
     Dates: start: 20000101, end: 20010101

REACTIONS (1)
  - BREAST CANCER FEMALE [None]
